FAERS Safety Report 21125333 (Version 1)
Quarter: 2022Q3

REPORT INFORMATION
  Report Type: Spontaneous
  Country: US (occurrence: None)
  Receive Date: 20220722
  Receipt Date: 20220722
  Transmission Date: 20221027
  Serious: Yes (Other)
  Sender: FDA-Public Use
  Company Number: None

PATIENT
  Age: 33 Year
  Sex: Female
  Weight: 76.66 kg

DRUGS (1)
  1. PARAGARD T 380A [Suspect]
     Active Substance: COPPER
     Dates: start: 20190604

REACTIONS (3)
  - Pregnancy with contraceptive device [None]
  - Exposure during pregnancy [None]
  - Complication of device insertion [None]

NARRATIVE: CASE EVENT DATE: 20220722
